FAERS Safety Report 9374595 (Version 4)
Quarter: 2015Q3

REPORT INFORMATION
  Report Type: Report from Study
  Country: AU (occurrence: AU)
  Receive Date: 20130628
  Receipt Date: 20150730
  Transmission Date: 20151125
  Serious: Yes (Hospitalization, Disabling)
  Sender: FDA-Public Use
  Company Number: AU-ROCHE-1242226

PATIENT
  Age: 83 Year
  Sex: Male

DRUGS (7)
  1. LIPITOR [Concomitant]
     Active Substance: ATORVASTATIN CALCIUM
     Route: 065
     Dates: start: 1991
  2. SEROQUEL [Concomitant]
     Active Substance: QUETIAPINE FUMARATE
     Route: 065
     Dates: start: 1963
  3. RANIBIZUMAB [Suspect]
     Active Substance: RANIBIZUMAB
     Indication: AGE-RELATED MACULAR DEGENERATION
     Dosage: 0.5MG IN 0.05ML?LAST DOSE PRIOR TO SAE ON 17/JUL/2012
     Route: 050
     Dates: start: 20080318
  4. RANIBIZUMAB [Suspect]
     Active Substance: RANIBIZUMAB
     Dosage: 0.5MG IN 0.05ML
     Route: 050
     Dates: start: 20120717
  5. RANIBIZUMAB [Suspect]
     Active Substance: RANIBIZUMAB
     Dosage: 0.5MG IN 0.05ML
     Route: 050
     Dates: start: 20120619
  6. RANIBIZUMAB [Suspect]
     Active Substance: RANIBIZUMAB
     Dosage: 0.5MG IN 0.05ML
     Route: 050
     Dates: start: 20110921
  7. MACU-VISION (AUSTRALIA) [Concomitant]
     Route: 065
     Dates: start: 2011, end: 20120831

REACTIONS (2)
  - Aphasia [Unknown]
  - Ischaemic stroke [Recovering/Resolving]

NARRATIVE: CASE EVENT DATE: 20120831
